FAERS Safety Report 7147800-5 (Version None)
Quarter: 2010Q4

REPORT INFORMATION
  Report Type: 
  Country: None (occurrence: None)
  Receive Date: 20101209
  Receipt Date: 20090904
  Transmission Date: 20110411
  Serious: No
  Sender: FDA-Public Use
  Company Number: 2009BI028428

PATIENT
  Age: 57 Year
  Sex: Female

DRUGS (1)
  1. TYSABRI [Suspect]
     Indication: MULTIPLE SCLEROSIS
     Route: 042
     Dates: start: 20081230

REACTIONS (3)
  - ASTHENIA [None]
  - MULTIPLE SCLEROSIS RELAPSE [None]
  - UPPER RESPIRATORY TRACT INFECTION [None]
